FAERS Safety Report 5179532-7 (Version None)
Quarter: 2006Q4

REPORT INFORMATION
  Report Type: 
  Country: None (occurrence: None)
  Receive Date: 20061219
  Receipt Date: 20061212
  Transmission Date: 20070319
  Serious: Yes (Death, Other)
  Sender: FDA-Public Use
  Company Number: US-ELI_LILLY_AND_COMPANY-US200612002087

PATIENT
  Age: 75 Year
  Sex: Male

DRUGS (2)
  1. XIGRIS [Suspect]
     Indication: SEPSIS
     Dosage: UNK, UNK
     Route: 042
     Dates: start: 20061207
  2. VASOPRESSIN INJECTION [Concomitant]
     Indication: SEPTIC SHOCK
     Dosage: UNK, UNK
     Dates: start: 20061201

REACTIONS (4)
  - BRADYCARDIA [None]
  - HAEMORRHAGE INTRACRANIAL [None]
  - PUPILLARY DISORDER [None]
  - PUPILLARY LIGHT REFLEX TESTS ABNORMAL [None]
